FAERS Safety Report 7923144 (Version 3)
Quarter: 2012Q4

REPORT INFORMATION
  Report Type: 
  Country: US (occurrence: US)
  Receive Date: 20110429
  Receipt Date: 20121206
  Transmission Date: 20130627
  Serious: No
  Sender: FDA-Public Use
  Company Number: US-ASTRAZENECA-2010SE22367

PATIENT
  Age: 62 Year
  Sex: Female

DRUGS (3)
  1. NEXIUM [Suspect]
     Route: 048
  2. PRILOSEC [Suspect]
     Route: 048
  3. TOBRAMYCIN [Concomitant]

REACTIONS (8)
  - Gastrooesophageal reflux disease [Unknown]
  - Erosive oesophagitis [Unknown]
  - Hiatus hernia [Unknown]
  - Urinary tract infection [Unknown]
  - Malaise [Unknown]
  - Cystitis noninfective [Unknown]
  - Sciatica [Unknown]
  - Drug ineffective [Unknown]
